FAERS Safety Report 8897054 (Version 1)
Quarter: 2012Q4

REPORT INFORMATION
  Report Type: 
  Country: US (occurrence: US)
  Receive Date: 20121108
  Receipt Date: 20121108
  Transmission Date: 20130627
  Serious: No
  Sender: FDA-Public Use
  Company Number: US-AMGEN-USASP2012025507

PATIENT
  Sex: Female
  Weight: 41.27 kg

DRUGS (13)
  1. ENBREL [Suspect]
     Indication: PRODUCT USED FOR UNKNOWN INDICATION
     Dosage: 50 mg, qwk
     Route: 058
  2. NAPROXEN [Concomitant]
     Dosage: 500 mg, UNK
  3. METFORMIN [Concomitant]
     Dosage: 500 mg, UNK
  4. SIMVASTATIN [Concomitant]
     Dosage: 80 mg, UNK
  5. FAMOTIDINE [Concomitant]
     Dosage: 10 mg, UNK
  6. LEVOTHYROXIN [Concomitant]
     Dosage: 112 mug, UNK
  7. PREDNISOLONE [Concomitant]
     Dosage: 5 mg, UNK
  8. LOSARTAN POTASSIUM [Concomitant]
     Dosage: 50 mg, UNK
  9. VITAMIN D3 [Concomitant]
     Dosage: 5000 IU, UNK
  10. FISH OIL [Concomitant]
     Dosage: UNK
  11. VITAMIN B COMPLEX PLUS [Concomitant]
  12. METHOTREXATE [Concomitant]
  13. IRON COMPLEX                       /00023501/ [Concomitant]

REACTIONS (4)
  - Nasopharyngitis [Unknown]
  - Sinusitis [Unknown]
  - Injection site swelling [Unknown]
  - Injection site erythema [Unknown]
